FAERS Safety Report 9632579 (Version 1)
Quarter: 2013Q4

REPORT INFORMATION
  Report Type: Spontaneous
  Country: FR (occurrence: FR)
  Receive Date: 20131018
  Receipt Date: 20131018
  Transmission Date: 20140711
  Serious: Yes (Other)
  Sender: FDA-Public Use
  Company Number: FR-ASTRAZENECA-2013SE76107

PATIENT
  Age: 30 Year
  Sex: Female

DRUGS (5)
  1. XEROQUEL [Suspect]
     Indication: DEPRESSION
     Route: 048
  2. BROMAZEPAM [Concomitant]
  3. SERTRALINE [Concomitant]
  4. ZOPICLONE [Concomitant]
  5. TIAPRIDAL [Concomitant]

REACTIONS (2)
  - Pyelonephritis [Unknown]
  - Gamma-glutamyltransferase increased [Unknown]
